FAERS Safety Report 6171235-5 (Version None)
Quarter: 2009Q2

REPORT INFORMATION
  Report Type: 
  Country: None (occurrence: None)
  Receive Date: 20090428
  Receipt Date: 20090428
  Transmission Date: 20091009
  Serious: Yes (Other)
  Sender: FDA-Public Use
  Company Number: None

PATIENT
  Age: 28 Year
  Sex: Female
  Weight: 81.6475 kg

DRUGS (1)
  1. ZICAM EXTREME CONGESTION RELIEF ZICAM 11C-MATRIXX INITIATIVES [Suspect]
     Indication: NASOPHARYNGITIS
     Dosage: 1 DROP ON EACH NOSTRIL 2 TIMES A DAY NASAL
     Route: 045
     Dates: start: 20090414, end: 20090427

REACTIONS (2)
  - AGEUSIA [None]
  - ANOSMIA [None]
